FAERS Safety Report 5945270-3 (Version None)
Quarter: 2008Q4

REPORT INFORMATION
  Report Type: 
  Country: None (occurrence: None)
  Receive Date: 20081107
  Receipt Date: 20081027
  Transmission Date: 20090506
  Serious: Yes (Death)
  Sender: FDA-Public Use
  Company Number: US-ELI_LILLY_AND_COMPANY-US200810006865

PATIENT
  Age: 48 Year
  Sex: Female

DRUGS (4)
  1. CYMBALTA [Suspect]
     Indication: MAJOR DEPRESSION
     Dosage: 60 MG, UNK
  2. CYMBALTA [Suspect]
     Dosage: 80 MG, UNK
  3. CYMBALTA [Suspect]
     Dosage: 90 MG, UNK
  4. KLONOPIN [Concomitant]

REACTIONS (1)
  - DEATH [None]
